FAERS Safety Report 24059919 (Version 1)
Quarter: 2024Q3

REPORT INFORMATION
  Report Type: Spontaneous
  Country: US (occurrence: None)
  Receive Date: 20240704
  Receipt Date: 20240704
  Transmission Date: 20241017
  Serious: Yes (Disabling)
  Sender: Public
  Company Number: None

PATIENT
  Age: 64 Year
  Sex: Female
  Weight: 60.75 kg

DRUGS (19)
  1. LEXAPRO [Suspect]
     Active Substance: ESCITALOPRAM OXALATE
     Indication: Anxiety
     Dosage: 2 TABLETS ORAL
     Route: 048
     Dates: start: 20220815, end: 20220923
  2. LEXAPRO [Suspect]
     Active Substance: ESCITALOPRAM OXALATE
     Indication: Sleep disorder
  3. QUERCETIN [Concomitant]
     Active Substance: QUERCETIN
  4. VITAMIN D [Concomitant]
     Active Substance: VITAMIN D NOS
  5. Bio_identical progesterone and estrogen [Concomitant]
  6. TESTOSTERONE [Concomitant]
     Active Substance: TESTOSTERONE
  7. HERBALS\SAW PALMETTO [Concomitant]
     Active Substance: HERBALS\SAW PALMETTO
  8. VITAMIN B COMPLEX [Concomitant]
     Active Substance: CYANOCOBALAMIN\DEXPANTHENOL\NIACINAMIDE\PYRIDOXINE HYDROCHLORIDE\RIBOFLAVIN 5^-PHOSPHATE SODIUM\THIA
  9. COENZYME Q10 [Concomitant]
     Active Substance: DIETARY SUPPLEMENT\UBIDECARENONE
  10. MAGNESIUM [Concomitant]
     Active Substance: MAGNESIUM
  11. GINGER [Concomitant]
     Active Substance: GINGER
  12. L-glutamine [Concomitant]
  13. CALCIUM [Concomitant]
     Active Substance: CALCIUM
  14. MELATONIN [Concomitant]
     Active Substance: MELATONIN
  15. GABA [Concomitant]
     Active Substance: HOMEOPATHICS
  16. DIETARY SUPPLEMENT [Concomitant]
     Active Substance: DIETARY SUPPLEMENT
  17. DRONABINOL [Concomitant]
     Active Substance: DRONABINOL
  18. UNSPECIFIED INGREDIENT [Concomitant]
     Active Substance: UNSPECIFIED INGREDIENT
  19. IMMUNOGLOBULINS [Concomitant]

REACTIONS (5)
  - Diarrhoea [None]
  - Abdominal pain upper [None]
  - Gastrointestinal pain [None]
  - Colitis microscopic [None]
  - Therapy cessation [None]

NARRATIVE: CASE EVENT DATE: 20220901
